FAERS Safety Report 16077732 (Version 2)
Quarter: 2019Q1

REPORT INFORMATION
  Report Type: Spontaneous
  Country: CN (occurrence: CN)
  Receive Date: 20190315
  Receipt Date: 20190322
  Transmission Date: 20190418
  Serious: Yes (Hospitalization, Other)
  Sender: FDA-Public Use
  Company Number: CN-BRACCO-2019CN01132

PATIENT
  Age: 50 Year
  Sex: Male

DRUGS (1)
  1. IOPAMIRO [Suspect]
     Active Substance: IOPAMIDOL
     Indication: ANGIOGRAM
     Dosage: 400 ML, SINGLE
     Dates: start: 20190304, end: 20190304

REACTIONS (5)
  - Posturing [Recovering/Resolving]
  - Overdose [Recovering/Resolving]
  - Contrast encephalopathy [Recovering/Resolving]
  - Hemiplegia [Recovering/Resolving]
  - Lethargy [Recovering/Resolving]

NARRATIVE: CASE EVENT DATE: 20190304
